FAERS Safety Report 16041678 (Version 13)
Quarter: 2020Q2

REPORT INFORMATION
  Report Type: Spontaneous
  Country: US (occurrence: US)
  Receive Date: 20190306
  Receipt Date: 20200610
  Transmission Date: 20200713
  Serious: Yes (Hospitalization, Other)
  Sender: FDA-Public Use
  Company Number: US-PFIZER INC-2018491052

PATIENT
  Age: 69 Year
  Sex: Female
  Weight: 77 kg

DRUGS (2)
  1. IBRANCE [Suspect]
     Active Substance: PALBOCICLIB
     Indication: BREAST CANCER METASTATIC
     Dosage: 100 MG, CYCLIC (ONCE A DAY FOR 21 DAYS AND OFF FOR 7 DAYS)
     Route: 048
     Dates: end: 201911
  2. FASLODEX [Concomitant]
     Active Substance: FULVESTRANT
     Dosage: UNK (2 SHOTS MONTHLY), CYCLIC
     Dates: start: 2014

REACTIONS (15)
  - Pulmonary oedema [Unknown]
  - Blood sodium decreased [Unknown]
  - White blood cells urine positive [Unknown]
  - Pulmonary function test decreased [Unknown]
  - Urinary tract infection [Recovered/Resolved]
  - Blood urine present [Unknown]
  - Oropharyngeal pain [Unknown]
  - Weight loss poor [Unknown]
  - Anxiety [Unknown]
  - Stress [Unknown]
  - Dyspnoea [Recovered/Resolved]
  - Neoplasm progression [Unknown]
  - Influenza [Not Recovered/Not Resolved]
  - Hypotonia [Unknown]
  - Mobility decreased [Unknown]

NARRATIVE: CASE EVENT DATE: 2018
